FAERS Safety Report 6058190-3 (Version None)
Quarter: 2009Q1

REPORT INFORMATION
  Report Type: 
  Country: None (occurrence: None)
  Receive Date: 20090130
  Receipt Date: 20090120
  Transmission Date: 20090719
  Serious: Yes (Hospitalization)
  Sender: FDA-Public Use
  Company Number: FR-PFIZER INC-2009159144

PATIENT

DRUGS (4)
  1. SUTENT [Suspect]
     Indication: BILE DUCT CANCER
     Route: 048
     Dates: start: 20080801, end: 20081120
  2. EPREX [Suspect]
     Indication: BILE DUCT CANCER
     Dosage: 40000 IU, WEEKLY
     Route: 042
     Dates: start: 20080923
  3. IRBESARTAN [Concomitant]
     Dosage: 150 UNK, 1X/DAY
     Route: 048
     Dates: start: 20081101
  4. TARDYFERON [Concomitant]
     Dosage: UNK
     Route: 048

REACTIONS (3)
  - CEREBROVASCULAR ACCIDENT [None]
  - HYPERTENSION [None]
  - TRANSIENT ISCHAEMIC ATTACK [None]
